FAERS Safety Report 8600123-7 (Version None)
Quarter: 2012Q3

REPORT INFORMATION
  Report Type: 
  Country: None (occurrence: None)
  Receive Date: 20120817
  Receipt Date: 20120807
  Transmission Date: 20120928
  Serious: Yes (Hospitalization, Other)
  Sender: FDA-Public Use
  Company Number: FR-BRISTOL-MYERS SQUIBB COMPANY-16845760

PATIENT
  Age: 80 Year
  Sex: Female

DRUGS (5)
  1. COUMADIN [Suspect]
     Dosage: INTERR  11JUN12 RESTART AT HALF-DOSE ON 19JUN
     Route: 048
     Dates: start: 20111212
  2. DIGOXIN [Concomitant]
     Dosage: HALF TAB PER DAY
  3. RAMIPRIL [Concomitant]
  4. LEVOTHYROXINE SODIUM [Concomitant]
  5. BISOPROLOL FUMARATE [Concomitant]

REACTIONS (3)
  - RECTAL HAEMORRHAGE [None]
  - OROPHARYNGEAL PAIN [None]
  - INTERNATIONAL NORMALISED RATIO INCREASED [None]
